FAERS Safety Report 20095995 (Version 1)
Quarter: 2021Q4

REPORT INFORMATION
  Report Type: Spontaneous
  Country: US (occurrence: US)
  Receive Date: 20211122
  Receipt Date: 20211122
  Transmission Date: 20220303
  Serious: No
  Sender: FDA-Public Use
  Company Number: US-ONCOPEPPR-00845

PATIENT
  Sex: Male

DRUGS (1)
  1. PEPAXTO [Suspect]
     Active Substance: MELPHALAN FLUFENAMIDE
     Indication: Neoplasm malignant
     Dosage: STANDARD DOSING
     Route: 065

REACTIONS (2)
  - Blood test abnormal [Unknown]
  - Drug ineffective [Unknown]
